FAERS Safety Report 13212431 (Version 1)
Quarter: 2017Q1

REPORT INFORMATION
  Report Type: Spontaneous
  Country: JP (occurrence: JP)
  Receive Date: 20170210
  Receipt Date: 20170210
  Transmission Date: 20170428
  Serious: Yes (Death, Other)
  Sender: FDA-Public Use
  Company Number: JP-PFIZER INC-2017057671

PATIENT
  Age: 2 Month
  Weight: 5 kg

DRUGS (9)
  1. LASIX [Concomitant]
     Active Substance: FUROSEMIDE
     Dosage: 3 MG, DAILY
  2. LAC B [Concomitant]
     Active Substance: BIFIDOBACTERIUM SPP.
     Dosage: 1 G, DAILY
  3. PARAMIDIN [Concomitant]
     Active Substance: BUCOLOME
  4. ALDACTONE A 10% [Suspect]
     Active Substance: SPIRONOLACTONE
     Dosage: 3 G, DAILY
     Route: 048
  5. WARFARIN [Concomitant]
     Active Substance: WARFARIN
  6. DIGOXIN. [Concomitant]
     Active Substance: DIGOXIN
  7. LASIX [Concomitant]
     Active Substance: FUROSEMIDE
     Dosage: 4 MG, DAILY
  8. ASVERIN (TIPEPIDINE HIBENZATE) [Concomitant]
     Active Substance: TIPEPIDINE HIBENZATE
  9. ALBUMIN TANNATE [Concomitant]
     Active Substance: ALBUMIN BOVINE\TANNIC ACID
     Dosage: 1 G, DAILY

REACTIONS (8)
  - Death [Fatal]
  - Dyspnoea [Unknown]
  - Asthenia [Unknown]
  - Asthma [Unknown]
  - Cough [Unknown]
  - Vomiting [Unknown]
  - Pyrexia [Unknown]
  - Aortic injury [Unknown]
